FAERS Safety Report 10141963 (Version 1)
Quarter: 2014Q2

REPORT INFORMATION
  Report Type: Spontaneous
  Country: JP (occurrence: JP)
  Receive Date: 20140429
  Receipt Date: 20140429
  Transmission Date: 20141212
  Serious: Yes (Death, Life-Threatening)
  Sender: FDA-Public Use
  Company Number: JP-SHIONOGI, INC-2014000384

PATIENT
  Age: 35 Year
  Sex: Male
  Weight: 48 kg

DRUGS (10)
  1. FINIBAX [Suspect]
     Indication: BACTERIAL INFECTION
     Dosage: 0.5 G, TID
     Route: 041
     Dates: start: 20140312, end: 20140410
  2. IFOMIDE [Suspect]
     Indication: LYMPHOMA
     Route: 041
     Dates: start: 20140404, end: 20140406
  3. METHOTREXATE [Suspect]
     Indication: LYMPHOMA
     Route: 041
     Dates: start: 20140403, end: 20140403
  4. LASTET [Concomitant]
     Indication: LYMPHOMA
     Route: 041
     Dates: start: 20140404, end: 20140406
  5. UROMITEXAN [Concomitant]
     Indication: CYSTITIS HAEMORRHAGIC
     Route: 041
     Dates: start: 20140404, end: 20140406
  6. LEUCOVORIN                         /00566701/ [Concomitant]
     Indication: TOXICITY TO VARIOUS AGENTS
     Dosage: 24 MG, TID
     Route: 041
     Dates: start: 20140403, end: 20140405
  7. VANCOMYCIN HYDROCHLORIDE [Concomitant]
     Indication: BACTERIAL INFECTION
     Route: 041
     Dates: start: 20140323, end: 20140410
  8. GRANISETRON [Concomitant]
     Route: 065
  9. DEXAMETHASONE [Concomitant]
     Indication: LYMPHOMA
     Dosage: 40 MG, QD
     Route: 041
  10. L-ASPARAGINASE [Concomitant]
     Indication: LYMPHOMA
     Route: 065

REACTIONS (2)
  - Lymphoma [Fatal]
  - Toxic epidermal necrolysis [Not Recovered/Not Resolved]
